FAERS Safety Report 13907108 (Version 1)
Quarter: 2017Q3

REPORT INFORMATION
  Report Type: Spontaneous
  Country: US (occurrence: US)
  Receive Date: 20170825
  Receipt Date: 20170825
  Transmission Date: 20171127
  Serious: Yes (Other)
  Sender: FDA-Public Use
  Company Number: US-SA-2017SA157800

PATIENT
  Age: 49 Year
  Sex: Female

DRUGS (1)
  1. AUBAGIO [Suspect]
     Active Substance: TERIFLUNOMIDE
     Indication: MULTIPLE SCLEROSIS
     Route: 048

REACTIONS (9)
  - Seizure [Unknown]
  - Weight decreased [Unknown]
  - Hypertension [Unknown]
  - Constipation [Unknown]
  - Abdominal distension [Unknown]
  - Pain [Unknown]
  - Diabetes mellitus [Unknown]
  - Diarrhoea [Unknown]
  - Unevaluable event [Unknown]
